FAERS Safety Report 5228615-1 (Version None)
Quarter: 2007Q1

REPORT INFORMATION
  Report Type: 
  Country: None (occurrence: None)
  Receive Date: 20070205
  Receipt Date: 20070130
  Transmission Date: 20070707
  Serious: Yes (Life-Threatening)
  Sender: FDA-Public Use
  Company Number: 2007AP00721

PATIENT
  Age: 54 Year
  Sex: Male

DRUGS (3)
  1. CRESTOR [Suspect]
     Indication: ARTERIOSCLEROSIS CORONARY ARTERY
     Route: 048
     Dates: start: 20070113
  2. ASPIRIN [Suspect]
     Indication: ARTERIOSCLEROSIS CORONARY ARTERY
     Route: 048
     Dates: start: 20061210
  3. PANALDINE [Suspect]
     Indication: ARTERIOSCLEROSIS CORONARY ARTERY
     Route: 048
     Dates: start: 20061211

REACTIONS (1)
  - GRANULOCYTOPENIA [None]
